FAERS Safety Report 4708959-X (Version None)
Quarter: 2005Q3

REPORT INFORMATION
  Report Type: 
  Country: None (occurrence: None)
  Receive Date: 20050705
  Receipt Date: 20050627
  Transmission Date: 20060218
  Serious: Yes (Hospitalization)
  Sender: FDA-Public Use
  Company Number: FABR-11153

PATIENT
  Age: 56 Year
  Sex: Male
  Weight: 55 kg

DRUGS (5)
  1. FABRAZYME [Suspect]
     Indication: FABRY'S DISEASE
     Dosage: 55 MG Q2WKS IV
     Route: 042
     Dates: start: 20041105, end: 20050606
  2. ETILEFRINE HYDROCHLORIDE [Concomitant]
  3. DOPAMINE HCL [Concomitant]
  4. HYDROCHORTISONE SODIUM SUCCINATE [Concomitant]
  5. PREDNISOLONE [Concomitant]

REACTIONS (2)
  - BLOOD PRESSURE DECREASED [None]
  - INFUSION RELATED REACTION [None]
